FAERS Safety Report 24799597 (Version 1)
Quarter: 2025Q1

REPORT INFORMATION
  Report Type: Spontaneous
  Country: US (occurrence: None)
  Receive Date: 20250102
  Receipt Date: 20250102
  Transmission Date: 20250409
  Serious: Yes (Death)
  Sender: FDA-CTU
  Company Number: None

PATIENT
  Age: 62 Year
  Sex: Female

DRUGS (4)
  1. SORAFENIB [Suspect]
     Active Substance: SORAFENIB
     Dosage: FREQUENCY : TWICE A DAY;?
     Route: 048
     Dates: start: 202411
  2. LENVIMA DAILY DOSE [Concomitant]
  3. TAFINLAR [Concomitant]
     Active Substance: DABRAFENIB MESYLATE
  4. MEKINIST [Concomitant]
     Active Substance: TRAMETINIB DIMETHYL SULFOXIDE

REACTIONS (3)
  - Neoplasm malignant [None]
  - Renal failure [None]
  - Pulmonary oedema [None]

NARRATIVE: CASE EVENT DATE: 20241208
